FAERS Safety Report 6701356-7 (Version None)
Quarter: 2010Q2

REPORT INFORMATION
  Report Type: 
  Country: None (occurrence: None)
  Receive Date: 20100429
  Receipt Date: 20100420
  Transmission Date: 20101027
  Serious: No
  Sender: FDA-Public Use
  Company Number: US-BIOGENIDEC-2010BI009446

PATIENT
  Sex: Female

DRUGS (6)
  1. TYSABRI [Suspect]
     Indication: MULTIPLE SCLEROSIS
     Route: 042
     Dates: start: 20050216, end: 20050216
  2. TYSABRI [Suspect]
     Route: 042
     Dates: start: 20060925, end: 20070816
  3. TYSABRI [Suspect]
     Route: 042
     Dates: start: 20071211
  4. COPAXONE [Concomitant]
     Indication: MULTIPLE SCLEROSIS
  5. CRESTOR [Concomitant]
     Indication: BLOOD CHOLESTEROL INCREASED
  6. ZETIA [Concomitant]
     Indication: BLOOD CHOLESTEROL INCREASED

REACTIONS (7)
  - ALLERGY TO PLANTS [None]
  - ASTHMA [None]
  - BRONCHITIS [None]
  - FATIGUE [None]
  - HEADACHE [None]
  - MULTIPLE ALLERGIES [None]
  - SEASONAL ALLERGY [None]
